FAERS Safety Report 9337598 (Version 1)
Quarter: 2013Q2

REPORT INFORMATION
  Report Type: Spontaneous
  Country: US (occurrence: US)
  Receive Date: 20130607
  Receipt Date: 20130607
  Transmission Date: 20140414
  Serious: Yes (Other)
  Sender: FDA-Public Use
  Company Number: US-UCBSA-087289

PATIENT
  Sex: Male

DRUGS (2)
  1. NEUPRO [Suspect]
     Indication: PARKINSON^S DISEASE
     Dosage: 4 MG PATCH DAILY
  2. NEUPRO [Suspect]
     Indication: PARKINSON^S DISEASE
     Dosage: TITRATING DOSE

REACTIONS (6)
  - Chest pain [Unknown]
  - Dysphagia [Unknown]
  - Blood pressure decreased [Unknown]
  - Heart rate decreased [Unknown]
  - Joint swelling [Unknown]
  - Anxiety [Unknown]
